FAERS Safety Report 7384484-5 (Version None)
Quarter: 2011Q1

REPORT INFORMATION
  Report Type: 
  Country: None (occurrence: None)
  Receive Date: 20110330
  Receipt Date: 20110324
  Transmission Date: 20110831
  Serious: Yes (Other)
  Sender: FDA-Public Use
  Company Number: US-SANOFI-AVENTIS-2011SA018211

PATIENT
  Age: 69 Year
  Sex: Female

DRUGS (5)
  1. ALL OTHER THERAPEUTIC PRODUCTS [Concomitant]
  2. LANTUS [Suspect]
     Indication: DIABETES MELLITUS
     Dosage: DOSE:15 UNIT(S)
     Route: 058
  3. LANTUS [Suspect]
     Dosage: DOSE:15 UNIT(S)
     Route: 058
  4. SOLOSTAR [Suspect]
     Indication: DIABETES MELLITUS
     Dates: start: 20100101
  5. SOLOSTAR [Suspect]
     Dates: start: 20100101

REACTIONS (1)
  - DEMENTIA ALZHEIMER'S TYPE [None]
